FAERS Safety Report 12206867 (Version 1)
Quarter: 2016Q1

REPORT INFORMATION
  Report Type: Spontaneous
  Country: US (occurrence: None)
  Receive Date: 20160323
  Receipt Date: 20160323
  Transmission Date: 20160526
  Serious: Yes (Disabling)
  Sender: FDA-Public Use
  Company Number: None

PATIENT
  Age: 51 Year
  Sex: Male
  Weight: 72.58 kg

DRUGS (6)
  1. FISH OIL [Concomitant]
     Active Substance: FISH OIL
  2. NAPROXEN. [Suspect]
     Active Substance: NAPROXEN
  3. COQ10 [Concomitant]
     Active Substance: UBIDECARENONE
  4. SAW PALMETTO [Concomitant]
     Active Substance: SAW PALMETTO
  5. MONTELUKAST SOD 10 MG ROXANE LABS [Suspect]
     Active Substance: MONTELUKAST SODIUM
     Indication: ASTHMA
     Dosage: 1 PILL ONCE DAILY TAKEN BY MOUTH
     Route: 048
     Dates: start: 20160303
  6. PROBIOTIC [Concomitant]
     Active Substance: PROBIOTICS NOS

REACTIONS (5)
  - Muscle fatigue [None]
  - Paralysis [None]
  - Fatigue [None]
  - Pyrexia [None]
  - Movement disorder [None]

NARRATIVE: CASE EVENT DATE: 20160304
